FAERS Safety Report 16805742 (Version 2)
Quarter: 2019Q3

REPORT INFORMATION
  Report Type: Spontaneous
  Country: HU (occurrence: HU)
  Receive Date: 20190913
  Receipt Date: 20190918
  Transmission Date: 20191005
  Serious: Yes (Other)
  Sender: FDA-Public Use
  Company Number: HU-MYLANLABS-2019M1085201

PATIENT
  Age: 42 Year
  Sex: Female

DRUGS (11)
  1. LETROZOLE. [Suspect]
     Active Substance: LETROZOLE
     Indication: INVASIVE DUCTAL BREAST CARCINOMA
     Dosage: UNK
     Route: 065
     Dates: start: 20140210, end: 20170207
  2. EPIRUBICIN [Suspect]
     Active Substance: EPIRUBICIN
     Indication: PRODUCT USED FOR UNKNOWN INDICATION
     Dosage: UNK
     Route: 065
     Dates: start: 2007, end: 2007
  3. PALBOCICLIB [Concomitant]
     Active Substance: PALBOCICLIB
     Indication: PALLIATIVE CARE
     Dosage: UNK
     Route: 065
     Dates: start: 201703
  4. CYCLOPHOSPHAMIDE. [Suspect]
     Active Substance: CYCLOPHOSPHAMIDE
     Indication: PRODUCT USED FOR UNKNOWN INDICATION
     Dosage: UNK
     Route: 065
     Dates: start: 2007, end: 2007
  5. LUCRIN [Concomitant]
     Active Substance: LEUPROLIDE ACETATE
     Indication: INVASIVE DUCTAL BREAST CARCINOMA
     Dosage: UNK
     Route: 065
     Dates: start: 201112, end: 20170207
  6. FLUOROURACIL. [Suspect]
     Active Substance: FLUOROURACIL
     Indication: PRODUCT USED FOR UNKNOWN INDICATION
     Dosage: UNK
     Route: 065
     Dates: start: 2007, end: 2007
  7. TAMOXIFEN [Concomitant]
     Active Substance: TAMOXIFEN
     Indication: INVASIVE DUCTAL BREAST CARCINOMA
     Dosage: UNK
     Route: 065
     Dates: start: 201112, end: 201311
  8. FULVESTRANT. [Suspect]
     Active Substance: FULVESTRANT
     Indication: PALLIATIVE CARE
     Dosage: UNK
     Route: 065
     Dates: start: 201703, end: 201809
  9. EVEROLIMUS. [Suspect]
     Active Substance: EVEROLIMUS
     Indication: PALLIATIVE CARE
     Dosage: 10 MG, OT
     Route: 065
     Dates: start: 201809
  10. EXEMESTANE. [Concomitant]
     Active Substance: EXEMESTANE
     Indication: PALLIATIVE CARE
     Dosage: 25 MG, UNK
     Route: 065
     Dates: start: 201809
  11. PALBOCICLIB [Concomitant]
     Active Substance: PALBOCICLIB
     Dosage: UNK
     Route: 065
     Dates: start: 201808, end: 201809

REACTIONS (7)
  - Metastases to pleura [Unknown]
  - Metastases to lymph nodes [Unknown]
  - Cough [Recovered/Resolved]
  - Dyspnoea [Recovered/Resolved]
  - Metastases to bone [Unknown]
  - Neutropenia [Recovered/Resolved]
  - Breast cancer recurrent [Unknown]

NARRATIVE: CASE EVENT DATE: 2018
